FAERS Safety Report 6357634-7 (Version None)
Quarter: 2009Q3

REPORT INFORMATION
  Report Type: 
  Country: None (occurrence: None)
  Receive Date: 20090916
  Receipt Date: 20090723
  Transmission Date: 20100115
  Serious: Yes (Other)
  Sender: FDA-Public Use
  Company Number: US-AMGEN-US357049

PATIENT
  Sex: Female
  Weight: 97.2 kg

DRUGS (7)
  1. NPLATE [Suspect]
     Indication: IDIOPATHIC THROMBOCYTOPENIC PURPURA
     Route: 058
     Dates: start: 20090625, end: 20090716
  2. SYNTHROID [Concomitant]
  3. LOPRESSOR [Concomitant]
  4. PEPCID [Concomitant]
  5. XANAX [Concomitant]
  6. CENTRUM SILVER [Concomitant]
  7. FISH OIL [Concomitant]

REACTIONS (1)
  - DRUG INEFFECTIVE [None]
